FAERS Safety Report 8315641 (Version 4)
Quarter: 2025Q4

REPORT INFORMATION
  Report Type: Spontaneous
  Country: EU (occurrence: EU)
  Receive Date: 20111229
  Receipt Date: 20251105
  Transmission Date: 20260118
  Serious: Yes (Life-Threatening)
  Sender: MERCK SHARP & DOHME LLC
  Company Number: None

PATIENT
  Age: 50 Year
  Sex: Female

DRUGS (16)
  1. INVANZ [Suspect]
     Active Substance: ERTAPENEM SODIUM
     Indication: Infection
     Dosage: DOSAGE FORM: UNSPECIFIED
     Route: 065
     Dates: start: 20111110, end: 20111114
  2. LEUCOVORIN CALCIUM [Concomitant]
     Active Substance: LEUCOVORIN CALCIUM
     Dosage: 25 MG, 3X/WEEK; DOSAGE FORM: UNSPECIFIED
     Route: 065
  3. CYCLOSPORINE [Suspect]
     Active Substance: CYCLOSPORINE
     Indication: Immunosuppression
     Dosage: DOSAGE FORM: UNSPECIFIED
     Route: 042
     Dates: start: 20111116
  4. DAFALGAN [Concomitant]
     Active Substance: ACETAMINOPHEN
     Dosage: 1 G, 4X/DAY; DOSAGE FORM: UNSPECIFIED
     Route: 065
  5. VALACYCLOVIR HYDROCHLORIDE [Concomitant]
     Active Substance: VALACYCLOVIR HYDROCHLORIDE
     Dosage: 100 MG, 2X/DAY; DOSAGE FORM: UNSPECIFIED
     Route: 065
  6. BRICANYL [Concomitant]
     Active Substance: TERBUTALINE SULFATE
     Dosage: 3 DF DAILY; DOSAGE FORM: UNSPECIFIED
  7. EPREX [Suspect]
     Active Substance: ERYTHROPOIETIN
     Indication: Anaemia
     Dosage: 8000 IU, 3X/WEEK
     Route: 065
     Dates: start: 20111024
  8. CYCLOSPORINE [Suspect]
     Active Substance: CYCLOSPORINE
     Indication: Immunosuppression
     Dosage: DOSAGE FORM: UNSPECIFIED
     Route: 042
     Dates: start: 20111024, end: 20111109
  9. ESOMEPRAZOLE [Concomitant]
     Active Substance: ESOMEPRAZOLE
     Dosage: 40 MG DAILY; DOSAGE FORM: UNSPECIFIED
  10. FUROSEMIDE [Concomitant]
     Active Substance: FUROSEMIDE
     Dosage: DOSE DESCRIPTION : 40 MILLIGRAM
     Route: 065
  11. VFEND [Suspect]
     Active Substance: VORICONAZOLE
     Indication: Infection
     Dosage: 400 MG, 2X/DAY; DOSAGE FORM: UNSPECIFIED
     Route: 065
     Dates: start: 20111024
  12. UMULINE [Concomitant]
     Active Substance: INSULIN HUMAN
     Dosage: DOSAGE FORM: UNSPECIFIED
  13. PROGRAF [Suspect]
     Active Substance: TACROLIMUS
     Indication: Immunosuppression
     Dosage: DOSAGE FORM: UNSPECIFIED
     Route: 065
     Dates: start: 20111107, end: 20111116
  14. PREDNISONE [Concomitant]
     Active Substance: PREDNISONE
     Dosage: DOSAGE FORM: UNSPECIFIED
     Route: 065
  15. CELLCEPT [Suspect]
     Active Substance: MYCOPHENOLATE MOFETIL
     Indication: Immunosuppression
     Dosage: 1 G, 2X/DAY
     Dates: start: 20111024
  16. ATROVENT [Concomitant]
     Active Substance: IPRATROPIUM BROMIDE
     Dosage: 3 DF DAILY; DOSAGE FORM: UNSPECIFIED

REACTIONS (2)
  - Partial seizures [Recovering/Resolving]
  - Posterior reversible encephalopathy syndrome [Recovered/Resolved]

NARRATIVE: CASE EVENT DATE: 20111114
